FAERS Safety Report 6728316-4 (Version None)
Quarter: 2010Q2

REPORT INFORMATION
  Report Type: 
  Country: None (occurrence: None)
  Receive Date: 20100512
  Receipt Date: 20100426
  Transmission Date: 20101027
  Serious: Yes (Other)
  Sender: FDA-Public Use
  Company Number: 010978

PATIENT
  Sex: Female

DRUGS (1)
  1. CIMZIA [Suspect]
     Indication: CROHN'S DISEASE
     Dosage: SUBCUTANEOUS
     Route: 058

REACTIONS (4)
  - CULTURE WOUND POSITIVE [None]
  - DEVICE BREAKAGE [None]
  - IMPAIRED HEALING [None]
  - STAPHYLOCOCCAL INFECTION [None]
